FAERS Safety Report 10749224 (Version 1)
Quarter: 2015Q1

REPORT INFORMATION
  Report Type: Spontaneous
  Country: US (occurrence: None)
  Receive Date: 20150116
  Receipt Date: 20150116
  Transmission Date: 20150721
  Serious: Yes (Hospitalization)
  Sender: FDA-Public Use
  Company Number: 2360282

PATIENT
  Age: 67 Year
  Sex: Female
  Weight: 68.6 kg

DRUGS (1)
  1. ROCURONIUM BROMIDE. [Suspect]
     Active Substance: ROCURONIUM BROMIDE
     Indication: PRODUCT USED FOR UNKNOWN INDICATION
     Route: 042
     Dates: start: 20140509, end: 20140509

REACTIONS (1)
  - Drug effect prolonged [None]

NARRATIVE: CASE EVENT DATE: 20140509
